FAERS Safety Report 7817951-8 (Version None)
Quarter: 2011Q4

REPORT INFORMATION
  Report Type: 
  Country: None (occurrence: None)
  Receive Date: 20111017
  Receipt Date: 20111010
  Transmission Date: 20120403
  Serious: Yes (Other)
  Sender: FDA-Public Use
  Company Number: FR-GLAXOSMITHKLINE-B0721767A

PATIENT
  Sex: Female

DRUGS (14)
  1. REQUIP [Suspect]
     Indication: PARKINSON'S DISEASE
     Route: 048
     Dates: start: 20100401, end: 20110401
  2. AUGMENTIN '125' [Concomitant]
     Dosage: 2TAB THREE TIMES PER DAY
     Route: 048
     Dates: start: 20090901, end: 20090901
  3. IMOVANE [Concomitant]
     Route: 065
     Dates: start: 20090901
  4. STALEVO 100 [Suspect]
     Indication: PARKINSON'S DISEASE
     Route: 048
     Dates: start: 20090301
  5. ACETAMINOPHEN [Concomitant]
     Route: 048
     Dates: start: 20090901
  6. ZOLPIDEM [Concomitant]
     Dosage: 1TAB PER DAY
     Route: 065
     Dates: start: 20090301
  7. PNEUMO 23 [Concomitant]
     Indication: PROPHYLAXIS
  8. LEXOMIL [Concomitant]
     Route: 065
     Dates: start: 20100201
  9. PERGOLIDE [Concomitant]
     Indication: PRODUCT USED FOR UNKNOWN INDICATION
     Route: 065
     Dates: start: 20011201, end: 20100401
  10. MODOPAR [Concomitant]
     Indication: PARKINSON'S DISEASE
     Dosage: 125MG SEVEN TIMES PER DAY
     Route: 048
     Dates: end: 20100401
  11. ESCITALOPRAM OXALATE [Concomitant]
     Indication: IMPULSE-CONTROL DISORDER
     Route: 065
     Dates: start: 20100401
  12. MYOLASTAN [Concomitant]
     Route: 065
     Dates: start: 20060601
  13. MUXOL [Concomitant]
     Dosage: 1TBS TWICE PER DAY
     Route: 065
     Dates: start: 20090901
  14. TRIVASTAL [Concomitant]
     Route: 065
     Dates: start: 20061128

REACTIONS (6)
  - DEPRESSION [None]
  - SOMNOLENCE [None]
  - PATHOLOGICAL GAMBLING [None]
  - HALLUCINATION, VISUAL [None]
  - INAPPROPRIATE SCHEDULE OF DRUG ADMINISTRATION [None]
  - SUICIDAL IDEATION [None]
